FAERS Safety Report 4576169-5 (Version None)
Quarter: 2005Q1

REPORT INFORMATION
  Report Type: 
  Country: None (occurrence: None)
  Receive Date: 20050204
  Receipt Date: 20050126
  Transmission Date: 20050727
  Serious: Yes (Hospitalization)
  Sender: FDA-Public Use
  Company Number: 2005005259

PATIENT
  Age: 72 Year
  Sex: Female
  Weight: 64 kg

DRUGS (5)
  1. DALTEPARIN                   (DALTEPARIN) [Suspect]
     Indication: ILL-DEFINED DISORDER
     Dosage: 2500 I.U.), SU-
     Dates: start: 20041022, end: 20041030
  2. ONDANSETRON HYDROCHLORIDE [Concomitant]
  3. ACETAMINOPHEN [Concomitant]
  4. NEFOPAM HYDROCHLORIDE [Concomitant]
  5. MORPHINE [Concomitant]

REACTIONS (13)
  - ADRENAL HAEMORRHAGE [None]
  - ADRENAL INSUFFICIENCY [None]
  - ADRENAL MASS [None]
  - BLOOD CORTICOTROPHIN INCREASED [None]
  - BLOOD CORTISOL DECREASED [None]
  - FLATULENCE [None]
  - HYPERTHERMIA [None]
  - HYPOCAPNIA [None]
  - HYPOXIA [None]
  - PULMONARY EMBOLISM [None]
  - SHOCK [None]
  - THROMBOCYTOPENIA [None]
  - ULTRASOUND DOPPLER ABNORMAL [None]
